FAERS Safety Report 10772189 (Version 2)
Quarter: 2015Q1

REPORT INFORMATION
  Report Type: Spontaneous
  Country: FR (occurrence: FR)
  Receive Date: 20150206
  Receipt Date: 20150304
  Transmission Date: 20150721
  Serious: Yes (Life-Threatening, Hospitalization, Other)
  Sender: FDA-Public Use
  Company Number: FR-ASTRAZENECA-2015SE10774

PATIENT
  Age: 23831 Day
  Sex: Female
  Weight: 68 kg

DRUGS (9)
  1. SEROPLEX [Concomitant]
     Active Substance: ESCITALOPRAM OXALATE
     Indication: DEPRESSION
  2. XEROQUEL [Suspect]
     Active Substance: QUETIAPINE FUMARATE
     Indication: ANXIETY
     Dosage: 50 MG, DAILY
     Route: 048
     Dates: start: 20140709
  3. XEROQUEL [Suspect]
     Active Substance: QUETIAPINE FUMARATE
     Indication: BIPOLAR DISORDER
     Dosage: 100 MG, DAILY
     Route: 048
  4. IMOVANE [Concomitant]
     Active Substance: ZOPICLONE
     Indication: INSOMNIA
  5. XEROQUEL [Suspect]
     Active Substance: QUETIAPINE FUMARATE
     Indication: BIPOLAR DISORDER
     Dosage: 50 MG, DAILY
     Route: 048
     Dates: start: 20140709
  6. XEROQUEL [Suspect]
     Active Substance: QUETIAPINE FUMARATE
     Indication: BIPOLAR DISORDER
     Dosage: 150 MG, DAILY
     Route: 048
  7. XEROQUEL [Suspect]
     Active Substance: QUETIAPINE FUMARATE
     Indication: ANXIETY
     Dosage: 150 MG, DAILY
     Route: 048
  8. TEMESTA [Concomitant]
     Active Substance: LORAZEPAM
     Indication: ANXIETY
  9. XEROQUEL [Suspect]
     Active Substance: QUETIAPINE FUMARATE
     Indication: ANXIETY
     Dosage: 100 MG, DAILY
     Route: 048

REACTIONS (9)
  - Pulmonary embolism [Unknown]
  - Myalgia [Recovered/Resolved]
  - Hypersomnia [Recovered/Resolved]
  - Blood cholesterol increased [Recovering/Resolving]
  - Hallucination, visual [Recovered/Resolved]
  - Sedation [Recovered/Resolved]
  - Blood triglycerides increased [Recovering/Resolving]
  - Tetany [Recovered/Resolved]
  - Arthralgia [Recovered/Resolved]

NARRATIVE: CASE EVENT DATE: 20140710
